FAERS Safety Report 6303404-5 (Version None)
Quarter: 2009Q3

REPORT INFORMATION
  Report Type: 
  Country: None (occurrence: None)
  Receive Date: 20090810
  Receipt Date: 20090728
  Transmission Date: 20100115
  Serious: Yes (Hospitalization)
  Sender: FDA-Public Use
  Company Number: CN-ROCHE-646486

PATIENT
  Sex: Male
  Weight: 50.5 kg

DRUGS (2)
  1. CELLCEPT [Suspect]
     Indication: RENAL TRANSPLANT
     Route: 048
     Dates: start: 20081231
  2. CYCLOSPORINE [Concomitant]
     Indication: RENAL TRANSPLANT
     Dosage: MANUFACTURED BY HANGZHOU ZHONGMEI HUADONG.
     Route: 048
     Dates: start: 20031231

REACTIONS (5)
  - ANAEMIA [None]
  - CACHEXIA [None]
  - DIARRHOEA [None]
  - GASTROOESOPHAGEAL REFLUX DISEASE [None]
  - VOMITING [None]
